FAERS Safety Report 7824764-X (Version None)
Quarter: 2011Q3

REPORT INFORMATION
  Report Type: 
  Country: None (occurrence: None)
  Receive Date: 20110901
  Receipt Date: 20110303
  Transmission Date: 20111222
  Serious: Yes (Other)
  Sender: FDA-Public Use
  Company Number: 270146USA

PATIENT
  Sex: Female

DRUGS (2)
  1. METOCLOPRAMIDE [Suspect]
  2. METOCLOPRAMIDE [Suspect]

REACTIONS (11)
  - DYSKINESIA [None]
  - TREMOR [None]
  - DEPRESSION [None]
  - BRUXISM [None]
  - TONGUE BITING [None]
  - HEAD TITUBATION [None]
  - MYOCLONUS [None]
  - MOVEMENT DISORDER [None]
  - RESTLESS LEGS SYNDROME [None]
  - ANXIETY [None]
  - SPEECH DISORDER [None]
